FAERS Safety Report 4790298-2 (Version None)
Quarter: 2005Q4

REPORT INFORMATION
  Report Type: 
  Country: None (occurrence: None)
  Receive Date: 20051005
  Receipt Date: 20051005
  Transmission Date: 20060501
  Serious: Yes (Hospitalization)
  Sender: FDA-Public Use
  Company Number: None

PATIENT
  Sex: Female

DRUGS (10)
  1. PREDNISONE [Suspect]
     Indication: PROPHYLAXIS AGAINST TRANSPLANT REJECTION
     Dosage: 60 MG PO DAILY
     Route: 048
     Dates: start: 20040712, end: 20040726
  2. TACROLIMUS [Concomitant]
  3. PREDNISONE [Concomitant]
  4. GABAPENTIN [Concomitant]
  5. METOPROLOL [Concomitant]
  6. RANITIDINE [Concomitant]
  7. INSULIN GLARGINE [Concomitant]
  8. SSI [Concomitant]
  9. DAPSONE [Concomitant]
  10. MAG OX [Concomitant]

REACTIONS (4)
  - BLOOD GLUCOSE INCREASED [None]
  - DIZZINESS [None]
  - POLLAKIURIA [None]
  - THIRST [None]
